FAERS Safety Report 22103285 (Version 8)
Quarter: 2023Q2

REPORT INFORMATION
  Report Type: Spontaneous
  Country: IN (occurrence: IN)
  Receive Date: 20230316
  Receipt Date: 20230525
  Transmission Date: 20230721
  Serious: Yes (Other)
  Sender: FDA-Public Use
  Company Number: IN-PFIZER INC-PV202300047943

PATIENT
  Age: 64 Year
  Sex: Male
  Weight: 82 kg

DRUGS (10)
  1. LORLATINIB [Suspect]
     Active Substance: LORLATINIB
     Indication: Lung cancer metastatic
     Dosage: 100 MG, 1X/DAY
     Route: 048
     Dates: start: 20230218
  2. LORLATINIB [Suspect]
     Active Substance: LORLATINIB
     Dosage: 100 MG, 1X/DAY
     Route: 048
     Dates: start: 20230221
  3. LORLATINIB [Suspect]
     Active Substance: LORLATINIB
     Dosage: 100 MG, 1X/DAY
     Dates: start: 20230225
  4. LORLATINIB [Suspect]
     Active Substance: LORLATINIB
     Dosage: 100 MG, 1X/DAY (FOUR 25 MG TABLETS, 1X/DAY)
     Route: 048
  5. ATORVASTATIN [Concomitant]
     Active Substance: ATORVASTATIN
     Indication: Blood cholesterol abnormal
     Dosage: 20 MG
     Dates: start: 20230220
  6. LEVERA [DACLATASVIR] [Concomitant]
     Dosage: 500 MG
     Dates: start: 20230220
  7. SHELCAL [CALCIUM CARBONATE;COLECALCIFEROL] [Concomitant]
     Dosage: UNK
     Dates: start: 20230215
  8. SHELCAL [CALCIUM CARBONATE;COLECALCIFEROL] [Concomitant]
     Dosage: 500 MG
     Dates: start: 20230220
  9. DEXAMETHASONE [Concomitant]
     Active Substance: DEXAMETHASONE
     Dosage: 2 MG
     Dates: start: 20230220
  10. LEVETIRACETAM [Concomitant]
     Active Substance: LEVETIRACETAM
     Dosage: UNK
     Dates: start: 20230202

REACTIONS (11)
  - Electrocardiogram QT prolonged [Unknown]
  - Brain oedema [Recovered/Resolved]
  - Haemoglobin decreased [Unknown]
  - Platelet count decreased [Unknown]
  - Low density lipoprotein increased [Unknown]
  - Peripheral swelling [Recovering/Resolving]
  - Blood cholesterol increased [Recovering/Resolving]
  - Fluid retention [Recovering/Resolving]
  - Swelling face [Recovering/Resolving]
  - Oedema peripheral [Unknown]
  - Generalised oedema [Unknown]

NARRATIVE: CASE EVENT DATE: 20230101
